FAERS Safety Report 25251572 (Version 1)
Quarter: 2025Q2

REPORT INFORMATION
  Report Type: Other
  Country: US (occurrence: US)
  Receive Date: 20250429
  Receipt Date: 20250429
  Transmission Date: 20250717
  Serious: No
  Sender: TRAVERE THERAPEUTICS
  Company Number: US-TRAVERE-2025TVT00426

PATIENT
  Age: 43 Year
  Sex: Male

DRUGS (1)
  1. FILSPARI [Suspect]
     Active Substance: SPARSENTAN
     Indication: IgA nephropathy
     Route: 048
     Dates: start: 202501, end: 202503

REACTIONS (7)
  - Liver function test abnormal [Unknown]
  - Blindness [Unknown]
  - Quality of life decreased [Unknown]
  - Fall [Unknown]
  - Stress [Unknown]
  - Feeling abnormal [Unknown]
  - Alanine aminotransferase increased [Unknown]

NARRATIVE: CASE EVENT DATE: 20250101
